FAERS Safety Report 10595065 (Version 1)
Quarter: 2014Q4

REPORT INFORMATION
  Report Type: Spontaneous
  Country: US (occurrence: None)
  Receive Date: 20141119
  Receipt Date: 20141119
  Transmission Date: 20150529
  Serious: Yes (Other)
  Sender: FDA-Public Use
  Company Number: None

PATIENT
  Age: 52 Year
  Sex: Female
  Weight: 61.24 kg

DRUGS (1)
  1. MIRENA [Suspect]
     Active Substance: LEVONORGESTREL

REACTIONS (8)
  - Pelvic pain [None]
  - Abdominal distension [None]
  - Mental impairment [None]
  - Breast tenderness [None]
  - Mood swings [None]
  - Hormone level abnormal [None]
  - Fatigue [None]
  - Job dissatisfaction [None]

NARRATIVE: CASE EVENT DATE: 20141111
